FAERS Safety Report 13397765 (Version 3)
Quarter: 2017Q2

REPORT INFORMATION
  Report Type: Spontaneous
  Country: NZ (occurrence: NZ)
  Receive Date: 20170403
  Receipt Date: 20170517
  Transmission Date: 20170830
  Serious: Yes (Hospitalization, Other)
  Sender: FDA-Public Use
  Company Number: NZ-REGENERON PHARMACEUTICALS, INC.-2017-13868

PATIENT

DRUGS (7)
  1. EYLEA [Suspect]
     Active Substance: AFLIBERCEPT
     Dosage: 0.05 ML, FOURTH
     Dates: start: 20160224, end: 20160224
  2. WARFARIN [Concomitant]
     Active Substance: WARFARIN
     Indication: PRODUCT USED FOR UNKNOWN INDICATION
     Dosage: UNK
     Dates: end: 2017
  3. EYLEA [Suspect]
     Active Substance: AFLIBERCEPT
     Dosage: 0.05 ML, THIRD
     Dates: start: 20160107, end: 20160107
  4. EYLEA [Suspect]
     Active Substance: AFLIBERCEPT
     Indication: CHOROIDAL NEOVASCULARISATION
     Dosage: 0.05 ML, FIRST
     Dates: start: 20151029, end: 20151029
  5. EYLEA [Suspect]
     Active Substance: AFLIBERCEPT
     Dosage: 0.05 ML, SECOND
     Dates: start: 20151126, end: 20151126
  6. EYLEA [Suspect]
     Active Substance: AFLIBERCEPT
     Dosage: 0.05 ML, FIFTH
     Dates: start: 20160407, end: 20160407
  7. EYLEA [Suspect]
     Active Substance: AFLIBERCEPT
     Dosage: 0.05 ML, SIXTH
     Dates: start: 20160718, end: 20160718

REACTIONS (6)
  - Retinal disorder [Unknown]
  - Urethral stenosis [Unknown]
  - Neovascular age-related macular degeneration [Unknown]
  - Vitreous adhesions [Unknown]
  - Intraocular lens implant [Unknown]
  - Macular scar [Unknown]

NARRATIVE: CASE EVENT DATE: 20161031
